FAERS Safety Report 12560916 (Version 1)
Quarter: 2016Q3

REPORT INFORMATION
  Report Type: Spontaneous
  Country: None (occurrence: DE)
  Receive Date: 20160715
  Receipt Date: 20160715
  Transmission Date: 20161109
  Serious: Yes (Other)
  Sender: FDA-Public Use
  Company Number: DE-MERCK KGAA-1055089

PATIENT

DRUGS (1)
  1. NOVOTHYROX [Suspect]
     Active Substance: LEVOTHYROXINE SODIUM

REACTIONS (9)
  - Inappropriate schedule of drug administration [None]
  - Drug hypersensitivity [None]
  - Wrong technique in product usage process [None]
  - Hyperthyroidism [None]
  - Blood parathyroid hormone increased [None]
  - Increased viscosity of upper respiratory secretion [None]
  - Blood thyroid stimulating hormone increased [None]
  - Vitamin D deficiency [None]
  - Product difficult to swallow [None]
